FAERS Safety Report 7806327-5 (Version None)
Quarter: 2011Q4

REPORT INFORMATION
  Report Type: 
  Country: None (occurrence: None)
  Receive Date: 20111007
  Receipt Date: 20111007
  Transmission Date: 20120403
  Serious: Yes (Other)
  Sender: FDA-Public Use
  Company Number: None

PATIENT
  Sex: Male

DRUGS (2)
  1. NEXAVAR [Suspect]
     Indication: HEPATIC NEOPLASM MALIGNANT
     Dosage: 400MG BID PO
     Route: 048
     Dates: start: 20110924
  2. NEXAVAR [Suspect]
     Indication: HEPATIC NEOPLASM MALIGNANT
     Dosage: 400MG BID PO
     Route: 048
     Dates: start: 20110910, end: 20110921

REACTIONS (2)
  - HEPATOMEGALY [None]
  - PANCREATITIS ACUTE [None]
